FAERS Safety Report 14587616 (Version 4)
Quarter: 2023Q4

REPORT INFORMATION
  Report Type: Report from Study
  Country: DE (occurrence: AT)
  Receive Date: 20180301
  Receipt Date: 20231207
  Transmission Date: 20240110
  Serious: Yes (Hospitalization, Other)
  Sender: FDA-Public Use
  Company Number: DE-TAKEDA-2018MPI000983

PATIENT
  Sex: Female

DRUGS (13)
  1. BRENTUXIMAB VEDOTIN [Suspect]
     Active Substance: BRENTUXIMAB VEDOTIN
     Indication: Hodgkin^s disease
     Dosage: 4.0 MG/M2, UNK
     Route: 065
     Dates: start: 20180119, end: 20180119
  2. BRENTUXIMAB VEDOTIN [Suspect]
     Active Substance: BRENTUXIMAB VEDOTIN
     Dosage: 1.8 UNK, UNK
     Route: 065
     Dates: start: 20180209
  3. DEXAMETHASONE [Suspect]
     Active Substance: DEXAMETHASONE
     Indication: Hodgkin^s disease
     Dosage: 40 MG, UNK
     Route: 065
     Dates: start: 20180120, end: 20180124
  4. DEXAMETHASONE [Suspect]
     Active Substance: DEXAMETHASONE
     Dosage: 40 MG, UNK
     Route: 065
     Dates: start: 20180210
  5. SULFAMETROLE\TRIMETHOPRIM [Concomitant]
     Active Substance: SULFAMETROLE\TRIMETHOPRIM
     Indication: Product used for unknown indication
     Dosage: UNK, 2/WEEK
     Route: 065
     Dates: start: 20180113, end: 20180131
  6. DOXORUBICIN [Suspect]
     Active Substance: DOXORUBICIN
     Indication: Hodgkin^s disease
     Dosage: 40 MILLIGRAM/SQ. METER
     Route: 065
     Dates: start: 20180120, end: 20180120
  7. DOXORUBICIN [Suspect]
     Active Substance: DOXORUBICIN
     Dosage: 39.75 MILLIGRAM/SQ. METER
     Route: 065
     Dates: start: 20180210
  8. CYCLOPHOSPHAMIDE [Suspect]
     Active Substance: CYCLOPHOSPHAMIDE
     Indication: Hodgkin^s disease
     Dosage: 1250 MILLIGRAM/SQ. METER
     Route: 065
     Dates: start: 20180120, end: 20180120
  9. CYCLOPHOSPHAMIDE [Suspect]
     Active Substance: CYCLOPHOSPHAMIDE
     Dosage: 1227.48 MILLIGRAM/SQ. METER
     Route: 065
     Dates: start: 20180210
  10. DACARBAZINE [Suspect]
     Active Substance: DACARBAZINE
     Indication: Hodgkin^s disease
     Dosage: 250 MILLIGRAM/SQ. METER
     Route: 065
     Dates: start: 20180121, end: 20180122
  11. DACARBAZINE [Suspect]
     Active Substance: DACARBAZINE
     Dosage: 251.34 MILLIGRAM/SQ. METER
     Route: 065
     Dates: start: 20180211
  12. ETOPOSIDE [Suspect]
     Active Substance: ETOPOSIDE
     Indication: Hodgkin^s disease
     Dosage: 150 MILLIGRAM/SQ. METER
     Route: 065
     Dates: start: 20180120, end: 20180122
  13. ETOPOSIDE [Suspect]
     Active Substance: ETOPOSIDE
     Dosage: 151.97 MILLIGRAM/SQ. METER
     Route: 065
     Dates: start: 20180210

REACTIONS (5)
  - Vertigo [Recovered/Resolved]
  - Neutropenia [Recovered/Resolved]
  - Diarrhoea [Recovered/Resolved]
  - Pyrexia [Recovered/Resolved]
  - Abdominal pain [Recovered/Resolved]

NARRATIVE: CASE EVENT DATE: 20180127
